FAERS Safety Report 23090434 (Version 1)
Quarter: 2023Q4

REPORT INFORMATION
  Report Type: Spontaneous
  Country: PL (occurrence: PL)
  Receive Date: 20231020
  Receipt Date: 20231020
  Transmission Date: 20240110
  Serious: Yes (Hospitalization, Other)
  Sender: FDA-Public Use
  Company Number: PL-MLMSERVICE-20231010-4599273-1

PATIENT
  Age: 77 Year
  Sex: Female

DRUGS (6)
  1. CARVEDILOL [Suspect]
     Active Substance: CARVEDILOL
     Indication: Cardiac failure
     Dosage: 25 MILLIGRAM
     Route: 065
  2. RAMIPRIL [Suspect]
     Active Substance: RAMIPRIL
     Indication: Cardiac failure
     Dosage: REDUCED (10 MG (5 MG,1 IN 12 HR))
     Route: 065
  3. RAMIPRIL [Suspect]
     Active Substance: RAMIPRIL
     Dosage: UP-TITRATED (10 MG (5 MG,1 IN 12 HR))
     Route: 065
  4. SPIRONOLACTONE [Suspect]
     Active Substance: SPIRONOLACTONE
     Indication: Cardiac failure
     Dosage: 25 MILLIGRAM, ONCE A DAY
     Route: 065
  5. DAPAGLIFLOZIN [Suspect]
     Active Substance: DAPAGLIFLOZIN
     Indication: Cardiac failure
     Dosage: 10 MILLIGRAM, ONCE A DAY
     Route: 065
  6. APIXABAN [Concomitant]
     Active Substance: APIXABAN
     Indication: Anticoagulant therapy
     Dosage: UNK
     Route: 048

REACTIONS (4)
  - Hypotension [Not Recovered/Not Resolved]
  - Renal impairment [Recovered/Resolved]
  - Hyperkalaemia [Recovered/Resolved]
  - Cardiac failure [Recovering/Resolving]
